FAERS Safety Report 17959827 (Version 1)
Quarter: 2020Q2

REPORT INFORMATION
  Report Type: Spontaneous
  Country: CN (occurrence: CN)
  Receive Date: 20200630
  Receipt Date: 20200630
  Transmission Date: 20200714
  Serious: Yes (Other)
  Sender: FDA-Public Use
  Company Number: CN-ROCHE-2629393

PATIENT
  Age: 59 Year
  Sex: Female

DRUGS (10)
  1. BEVACIZUMAB. [Suspect]
     Active Substance: BEVACIZUMAB
     Dosage: THE THERAPY DETAIL WAS NOT PROVIDED
     Route: 065
  2. BEVACIZUMAB. [Suspect]
     Active Substance: BEVACIZUMAB
     Indication: RECTAL CANCER METASTATIC
     Route: 041
     Dates: start: 20200330
  3. CALCIUM FOLINATE [Suspect]
     Active Substance: LEUCOVORIN CALCIUM
     Indication: RECTAL CANCER METASTATIC
     Route: 041
     Dates: start: 20200330
  4. IRINOTECAN HYDROCHLORIDE. [Suspect]
     Active Substance: IRINOTECAN HYDROCHLORIDE
     Indication: RECTAL CANCER METASTATIC
     Route: 041
     Dates: start: 20200330
  5. REDUCED GLUTATHIONE SODIUM [Concomitant]
     Active Substance: GLUTATHIONE
     Route: 041
     Dates: start: 20200320
  6. FLUOROURACIL. [Suspect]
     Active Substance: FLUOROURACIL
     Route: 042
     Dates: start: 20200330
  7. FLUOROURACIL. [Suspect]
     Active Substance: FLUOROURACIL
     Dosage: THE THERAPY DETAIL WAS NOT PROVIDED
     Route: 065
  8. CALCIUM FOLINATE [Suspect]
     Active Substance: LEUCOVORIN CALCIUM
     Dosage: THE THERAPY DETAIL WAS NOT PROVIDED
     Route: 065
  9. IRINOTECAN HYDROCHLORIDE. [Suspect]
     Active Substance: IRINOTECAN HYDROCHLORIDE
     Route: 065
  10. FLUOROURACIL. [Suspect]
     Active Substance: FLUOROURACIL
     Indication: RECTAL CANCER METASTATIC
     Route: 042
     Dates: start: 20200330

REACTIONS (4)
  - Bone marrow failure [Recovering/Resolving]
  - Hepatic function abnormal [Recovering/Resolving]
  - Drug-induced liver injury [Unknown]
  - Nausea [Recovering/Resolving]

NARRATIVE: CASE EVENT DATE: 20200402
